FAERS Safety Report 9786475 (Version 2)
Quarter: 2014Q1

REPORT INFORMATION
  Report Type: Spontaneous
  Country: US (occurrence: None)
  Receive Date: 20131226
  Receipt Date: 20140124
  Transmission Date: 20141002
  Serious: Yes (Other)
  Sender: FDA-Public Use
  Company Number: ADR-2013-02322

PATIENT
  Sex: Male

DRUGS (2)
  1. BACLOFEN [Suspect]
     Indication: MUSCLE SPASTICITY
  2. VICODIN [Suspect]

REACTIONS (5)
  - Headache [None]
  - Device leakage [None]
  - CSF pressure increased [None]
  - Device leakage [None]
  - Device dislocation [None]
